FAERS Safety Report 6997543-3 (Version None)
Quarter: 2010Q3

REPORT INFORMATION
  Report Type: 
  Country: None (occurrence: None)
  Receive Date: 20100918
  Receipt Date: 20091026
  Transmission Date: 20110219
  Serious: No
  Sender: FDA-Public Use
  Company Number: US-WYE-H11897209

PATIENT
  Sex: Male

DRUGS (4)
  1. PRISTIQ [Suspect]
     Indication: ANXIETY
     Route: 048
     Dates: start: 20091012
  2. LIPITOR [Concomitant]
  3. PULMICORT [Concomitant]
  4. PANTOPRAZOLE [Concomitant]

REACTIONS (1)
  - SUPRAVENTRICULAR EXTRASYSTOLES [None]
